FAERS Safety Report 23953333 (Version 1)
Quarter: 2024Q2

REPORT INFORMATION
  Report Type: Spontaneous
  Country: US (occurrence: US)
  Receive Date: 20240608
  Receipt Date: 20240608
  Transmission Date: 20240716
  Serious: No
  Sender: FDA-Public Use
  Company Number: US-SPECGX-T202301935

PATIENT

DRUGS (1)
  1. ACETAMINOPHEN\HYDROCODONE [Suspect]
     Active Substance: ACETAMINOPHEN\HYDROCODONE
     Indication: Pain management
     Dosage: UNK
     Route: 065

REACTIONS (4)
  - Pain [Unknown]
  - Drug withdrawal syndrome [Unknown]
  - Product availability issue [Unknown]
  - Loss of personal independence in daily activities [Unknown]
